FAERS Safety Report 4835865-2 (Version None)
Quarter: 2005Q4

REPORT INFORMATION
  Report Type: 
  Country: None (occurrence: None)
  Receive Date: 20051118
  Receipt Date: 20051104
  Transmission Date: 20060501
  Serious: Yes (Other)
  Sender: FDA-Public Use
  Company Number: 12702

PATIENT
  Age: 16 Year
  Sex: Female

DRUGS (1)
  1. CYTARABINE [Suspect]
     Indication: LEUKAEMIA RECURRENT
     Dosage: 2 G/M2

REACTIONS (1)
  - SIMPLE PARTIAL SEIZURES [None]
